FAERS Safety Report 11857652 (Version 1)
Quarter: 2015Q4

REPORT INFORMATION
  Report Type: Spontaneous
  Country: US (occurrence: None)
  Receive Date: 20151221
  Receipt Date: 20151221
  Transmission Date: 20160305
  Serious: Yes (Other)
  Sender: FDA-Public Use
  Company Number: None

PATIENT
  Age: 41 Year
  Sex: Female
  Weight: 47.63 kg

DRUGS (5)
  1. EXCEDERIN [Concomitant]
  2. CIPROFLOXACIN. [Suspect]
     Active Substance: CIPROFLOXACIN
     Indication: URINARY TRACT INFECTION
     Dosage: TAKE 1 TABLET EVERY 12 HOURS  TWICE DAILY  TAKEN BY MOUTH
     Route: 048
     Dates: start: 20151213, end: 20151219
  3. SUMATRIPTAN. [Concomitant]
     Active Substance: SUMATRIPTAN
  4. FIORICET [Concomitant]
     Active Substance: ACETAMINOPHEN\BUTALBITAL\CAFFEINE
  5. ALLEGRA-D [Concomitant]
     Active Substance: FEXOFENADINE\PSEUDOEPHEDRINE

REACTIONS (6)
  - Nausea [None]
  - Bone pain [None]
  - Chills [None]
  - Pyrexia [None]
  - Myalgia [None]
  - Pain in extremity [None]

NARRATIVE: CASE EVENT DATE: 20151213
